FAERS Safety Report 10749425 (Version 2)
Quarter: 2015Q2

REPORT INFORMATION
  Report Type: Report from Study
  Country: RO (occurrence: RO)
  Receive Date: 20150129
  Receipt Date: 20150508
  Transmission Date: 20150821
  Serious: Yes (Death)
  Sender: FDA-Public Use
  Company Number: RO-ABBVIE-15P-135-1338654-00

PATIENT
  Sex: Female

DRUGS (1)
  1. LEVODOPA/CARBIDOPA [Suspect]
     Active Substance: CARBIDOPA\LEVODOPA
     Indication: PARKINSON^S DISEASE
     Dosage: 24/24 H CR 5.7 ML/H?ED 2.3 ML
     Route: 065
     Dates: start: 20140919, end: 20150126

REACTIONS (1)
  - Carbon monoxide poisoning [Fatal]

NARRATIVE: CASE EVENT DATE: 20150126
